FAERS Safety Report 19963468 (Version 1)
Quarter: 2021Q4

REPORT INFORMATION
  Report Type: Spontaneous
  Country: US (occurrence: US)
  Receive Date: 20211014
  Receipt Date: 20211014
  Transmission Date: 20220303
  Serious: Yes (Hospitalization)
  Sender: FDA-Public Use
  Company Number: None

PATIENT
  Sex: Female

DRUGS (1)
  1. ZYKADIA [Suspect]
     Active Substance: CERITINIB
     Indication: Anaplastic large-cell lymphoma
     Route: 048
     Dates: start: 20210930

REACTIONS (1)
  - Hospitalisation [None]
